FAERS Safety Report 9144118 (Version 6)
Quarter: 2014Q2

REPORT INFORMATION
  Report Type: Report from Study
  Country: JP (occurrence: JP)
  Receive Date: 20130306
  Receipt Date: 20140529
  Transmission Date: 20141212
  Serious: Yes (Hospitalization)
  Sender: FDA-Public Use
  Company Number: JP-ROCHE-1110428

PATIENT
  Age: 55 Year
  Sex: Male

DRUGS (7)
  1. PEG-INTERFERON ALFA 2A [Suspect]
     Indication: CHRONIC HEPATITIS C
     Dosage: 180 MCG/ML
     Route: 058
     Dates: start: 20111101, end: 20120813
  2. PEG-INTERFERON ALFA 2A [Suspect]
     Dosage: 90 MCG/ML
     Route: 058
     Dates: start: 20120827, end: 20120918
  3. RIBAVIRIN [Suspect]
     Indication: CHRONIC HEPATITIS C
     Route: 048
     Dates: start: 20111101, end: 20120816
  4. RIBAVIRIN [Suspect]
     Route: 048
     Dates: start: 20120827, end: 20120909
  5. RIBAVIRIN [Suspect]
     Route: 048
     Dates: start: 20120910, end: 20120913
  6. RIBAVIRIN [Suspect]
     Route: 048
     Dates: start: 20120914, end: 20120917
  7. BI 201335 [Suspect]
     Indication: CHRONIC HEPATITIS C
     Route: 048
     Dates: start: 20111101, end: 20120415

REACTIONS (1)
  - Drug reaction with eosinophilia and systemic symptoms [Recovered/Resolved]
